FAERS Safety Report 5623673-4 (Version None)
Quarter: 2008Q1

REPORT INFORMATION
  Report Type: 
  Country: None (occurrence: None)
  Receive Date: 20080212
  Receipt Date: 20080130
  Transmission Date: 20080703
  Serious: Yes (Other)
  Sender: FDA-Public Use
  Company Number: IN-ELI_LILLY_AND_COMPANY-IN200801006788

PATIENT
  Age: 42 Year
  Sex: Male

DRUGS (3)
  1. BYETTA [Suspect]
     Dosage: 5 UG, DAILY (1/D)
     Route: 058
  2. BYETTA [Suspect]
     Dosage: 10 UG, DAILY (1/D)
     Route: 058
     Dates: start: 20080101
  3. ANTIHYPERTENSIVES [Concomitant]
     Dosage: UNK, UNKNOWN

REACTIONS (1)
  - DIABETES MELLITUS INADEQUATE CONTROL [None]
